FAERS Safety Report 7927541-4 (Version None)
Quarter: 2011Q4

REPORT INFORMATION
  Report Type: 
  Country: None (occurrence: None)
  Receive Date: 20111118
  Receipt Date: 20111107
  Transmission Date: 20120403
  Serious: Yes (Hospitalization, Other)
  Sender: FDA-Public Use
  Company Number: US-BAYER-2011-050340

PATIENT
  Age: 22 Year
  Sex: Female
  Weight: 68.027 kg

DRUGS (4)
  1. AMOXICILLIN [Concomitant]
     Dosage: 850 MG, UNK
     Route: 048
     Dates: start: 20090727, end: 20091105
  2. YASMIN [Suspect]
     Indication: CONTRACEPTION
     Dosage: UNK
     Dates: start: 20050101, end: 20090101
  3. YAZ [Suspect]
     Indication: CONTRACEPTION
     Dosage: UNK
     Dates: start: 20050101, end: 20090101
  4. ALBUTEROL [Concomitant]
     Indication: ASTHMA

REACTIONS (5)
  - CHOLELITHIASIS [None]
  - INJURY [None]
  - GALLBLADDER DISORDER [None]
  - ABDOMINAL PAIN [None]
  - CHOLECYSTITIS CHRONIC [None]
